FAERS Safety Report 24269320 (Version 2)
Quarter: 2024Q3

REPORT INFORMATION
  Report Type: Spontaneous
  Country: CN (occurrence: CN)
  Receive Date: 20240830
  Receipt Date: 20240913
  Transmission Date: 20241016
  Serious: Yes (Hospitalization, Other)
  Sender: AZURITY PHARMACEUTICALS
  Company Number: CN-AZURITY PHARMACEUTICALS, INC.-AZR202408-000411

PATIENT
  Age: 81 Year
  Sex: Male

DRUGS (14)
  1. DEXMEDETOMIDINE HYDROCHLORIDE [Suspect]
     Active Substance: DEXMEDETOMIDINE HYDROCHLORIDE
     Indication: Pain
     Dosage: 0.2 MILLIGRAM, UNK
     Route: 042
     Dates: start: 20191229
  2. DEXMEDETOMIDINE HYDROCHLORIDE [Suspect]
     Active Substance: DEXMEDETOMIDINE HYDROCHLORIDE
     Dosage: 0.2 MILLIGRAM, UNK
     Route: 042
     Dates: start: 20191231
  3. DEXMEDETOMIDINE HYDROCHLORIDE [Suspect]
     Active Substance: DEXMEDETOMIDINE HYDROCHLORIDE
     Dosage: 0.2 MILLIGRAM, UNK
     Route: 042
     Dates: start: 20200104
  4. DEXMEDETOMIDINE HYDROCHLORIDE [Suspect]
     Active Substance: DEXMEDETOMIDINE HYDROCHLORIDE
     Dosage: UNK
     Route: 065
     Dates: start: 20200105
  5. DEXMEDETOMIDINE HYDROCHLORIDE [Suspect]
     Active Substance: DEXMEDETOMIDINE HYDROCHLORIDE
     Dosage: UNK
     Route: 065
     Dates: start: 20200105
  6. DEXMEDETOMIDINE HYDROCHLORIDE [Suspect]
     Active Substance: DEXMEDETOMIDINE HYDROCHLORIDE
     Dosage: 16 MICROGRAM PER HOUR, UNK
     Route: 042
  7. KETOROLAC TROMETHAMINE [Concomitant]
     Active Substance: KETOROLAC TROMETHAMINE
     Indication: Pain in extremity
     Dosage: 30 MILLIGRAM, QD
     Route: 030
     Dates: start: 20191220, end: 20241223
  8. SODIUM CHLORIDE [Concomitant]
     Active Substance: SODIUM CHLORIDE
     Indication: Pain in extremity
     Dosage: 18 MILLILITER, UNK (18 ML, INTRAVENOUS PUMPING AT A RATE OF 2 ML/H, 1 TIME/D)
     Route: 042
  9. SODIUM CHLORIDE [Concomitant]
     Active Substance: SODIUM CHLORIDE
     Dosage: 48 MILLILITER, UNK ( INTRAVENOUSLY PUMPED AT A RATE OF 5 ML/H)
     Route: 042
     Dates: start: 20191223
  10. OSELTAMIVIR PHOSPHATE [Concomitant]
     Active Substance: OSELTAMIVIR PHOSPHATE
     Indication: Influenza
     Dosage: 75 MILLIGRAM, BID
     Route: 048
     Dates: start: 20191226, end: 20200102
  11. Moxifloxacin sodium chloride injection [Concomitant]
     Indication: Influenza
     Dosage: 0.4 GRAM, UNK (0.4G BY INTRAVENOUS INFUSION, 1 TIME/D)
     Route: 042
     Dates: start: 20191229, end: 20200103
  12. TRAMADOL [Concomitant]
     Active Substance: TRAMADOL\TRAMADOL HYDROCHLORIDE
     Indication: Delirium
     Dosage: 100 MILLIGRAM, QD
     Route: 030
  13. TRAMADOL [Concomitant]
     Active Substance: TRAMADOL\TRAMADOL HYDROCHLORIDE
     Indication: Pain
     Dosage: 0.1 GRAM, UNK (0.1 G OF TRAMADOL INJECTION WAS INJECTED INTRAMUSCULARLY, L TIME/D)
     Route: 030
  14. FENTANYL [Concomitant]
     Active Substance: FENTANYL\FENTANYL CITRATE
     Indication: Pain in extremity
     Dosage: 2 MILLIGRAM, UNK
     Route: 065
     Dates: start: 20191223, end: 20191226

REACTIONS (2)
  - Delirium [Recovered/Resolved]
  - Irritability [Recovered/Resolved]

NARRATIVE: CASE EVENT DATE: 20200101
